FAERS Safety Report 6890385-9 (Version None)
Quarter: 2010Q3

REPORT INFORMATION
  Report Type: 
  Country: None (occurrence: None)
  Receive Date: 20100730
  Receipt Date: 20081013
  Transmission Date: 20110219
  Serious: No
  Sender: FDA-Public Use
  Company Number: US-PFIZER INC-2008086518

PATIENT
  Sex: Male
  Weight: 81.818 kg

DRUGS (6)
  1. LIPITOR [Suspect]
     Indication: BLOOD CHOLESTEROL INCREASED
     Route: 048
     Dates: end: 20081012
  2. LIPITOR [Suspect]
     Indication: CARDIAC DISORDER
  3. QUINAPRIL [Concomitant]
  4. VERAPAMIL [Concomitant]
  5. LEXAPRO [Concomitant]
  6. SOTALOL HCL [Concomitant]

REACTIONS (2)
  - RASH [None]
  - WRONG TECHNIQUE IN DRUG USAGE PROCESS [None]
